FAERS Safety Report 8352757-5 (Version None)
Quarter: 2012Q2

REPORT INFORMATION
  Report Type: 
  Country: None (occurrence: None)
  Receive Date: 20120511
  Receipt Date: 20120501
  Transmission Date: 20120825
  Serious: Yes (Death)
  Sender: FDA-Public Use
  Company Number: CN-GENZYME-CERZ-1002489

PATIENT
  Sex: Male
  Weight: 18 kg

DRUGS (3)
  1. CEREZYME [Suspect]
     Indication: GAUCHER'S DISEASE
     Dosage: 400 U, UNK
     Route: 042
     Dates: start: 20120201, end: 20120201
  2. CEREZYME [Suspect]
     Dosage: 66.7 U/KG, Q4W
     Route: 042
     Dates: start: 20101001, end: 20120201
  3. CEREZYME [Suspect]
     Dosage: UNK
     Route: 042
     Dates: start: 20080701, end: 20101001

REACTIONS (1)
  - HEAD INJURY [None]
